FAERS Safety Report 5570967-7 (Version None)
Quarter: 2007Q4

REPORT INFORMATION
  Report Type: 
  Country: None (occurrence: None)
  Receive Date: 20071221
  Receipt Date: 20071217
  Transmission Date: 20080405
  Serious: Yes (Death)
  Sender: FDA-Public Use
  Company Number: JP-BRISTOL-MYERS SQUIBB COMPANY-13977483

PATIENT
  Age: 89 Year
  Sex: Male

DRUGS (8)
  1. TAXOL [Suspect]
     Indication: BLADDER CANCER
     Route: 041
     Dates: start: 20051115, end: 20051115
  2. IFOSFAMIDE [Suspect]
     Indication: BLADDER CANCER
     Route: 041
     Dates: start: 20051115, end: 20051117
  3. AQUPLA [Suspect]
     Indication: BLADDER CANCER
     Route: 041
     Dates: start: 20051115, end: 20051115
  4. DECADRON [Suspect]
     Indication: PREMEDICATION
     Route: 042
     Dates: start: 20051114, end: 20051117
  5. UROMITEXAN [Concomitant]
     Route: 041
     Dates: start: 20051115, end: 20051117
  6. ZANTAC [Concomitant]
     Route: 042
     Dates: start: 20051115, end: 20051115
  7. SEROTONE [Concomitant]
     Route: 042
     Dates: start: 20051115, end: 20051117
  8. RESTAMIN [Concomitant]
     Route: 048
     Dates: start: 20051115, end: 20051115

REACTIONS (2)
  - FEBRILE NEUTROPENIA [None]
  - PNEUMONIA STAPHYLOCOCCAL [None]
